FAERS Safety Report 23727801 (Version 1)
Quarter: 2024Q2

REPORT INFORMATION
  Report Type: Spontaneous
  Country: US (occurrence: None)
  Receive Date: 20240410
  Receipt Date: 20240410
  Transmission Date: 20240716
  Serious: No
  Sender: FDA-Public Use
  Company Number: None

PATIENT
  Age: 78 Year
  Sex: Male
  Weight: 74 kg

DRUGS (3)
  1. FLUOROURACIL [Suspect]
     Active Substance: FLUOROURACIL
  2. IRINOTECAN LIPOSOME (MM-398, ONIVYDE) [Concomitant]
  3. LEUCOVORIN CALCIUM [Concomitant]

REACTIONS (9)
  - Therapy cessation [None]
  - Malignant neoplasm progression [None]
  - Pancreatic carcinoma [None]
  - Nausea [None]
  - Hepatic lesion [None]
  - Hepatic cirrhosis [None]
  - Malignant ascites [None]
  - Spontaneous bacterial peritonitis [None]
  - Gastrooesophageal reflux disease [None]

NARRATIVE: CASE EVENT DATE: 20240314
